FAERS Safety Report 22828211 (Version 14)
Quarter: 2025Q2

REPORT INFORMATION
  Report Type: Report from Study
  Country: CO (occurrence: CO)
  Receive Date: 20230816
  Receipt Date: 20250429
  Transmission Date: 20250717
  Serious: Yes (Other)
  Sender: TAKEDA
  Company Number: CO-TAKEDA-2023TUS017639

PATIENT
  Age: 28 Year
  Sex: Male
  Weight: 65 kg

DRUGS (3)
  1. VEDOLIZUMAB [Suspect]
     Active Substance: VEDOLIZUMAB
     Indication: Colitis ulcerative
  2. VEDOLIZUMAB [Suspect]
     Active Substance: VEDOLIZUMAB
     Dosage: 300 MILLIGRAM, Q4WEEKS
  3. VEDOLIZUMAB [Suspect]
     Active Substance: VEDOLIZUMAB

REACTIONS (10)
  - Haematochezia [Recovering/Resolving]
  - Pain [Unknown]
  - Headache [Unknown]
  - Treatment noncompliance [Unknown]
  - Lymphadenitis [Recovered/Resolved]
  - Weight decreased [Unknown]
  - Pseudopolyposis [Unknown]
  - Weight increased [Unknown]
  - Malaise [Recovering/Resolving]
  - Nasal congestion [Recovering/Resolving]

NARRATIVE: CASE EVENT DATE: 20230203
